FAERS Safety Report 17697205 (Version 4)
Quarter: 2020Q2

REPORT INFORMATION
  Report Type: Report from Study
  Country: US (occurrence: US)
  Receive Date: 20200423
  Receipt Date: 20200518
  Transmission Date: 20200714
  Serious: Yes (Life-Threatening, Hospitalization, Other)
  Sender: FDA-Public Use
  Company Number: US-GLAXOSMITHKLINE-US2020066807

PATIENT
  Age: 73 Year
  Sex: Male
  Weight: 91 kg

DRUGS (12)
  1. ASPIRIN. [Concomitant]
     Active Substance: ASPIRIN
     Indication: CARDIOVASCULAR EVENT PROPHYLAXIS
     Dosage: 81 MG, QD
     Route: 048
     Dates: start: 2005
  2. ASCORBIC ACID. [Concomitant]
     Active Substance: ASCORBIC ACID
     Indication: GENERAL PHYSICAL CONDITION
     Dosage: 500 MG, QD
     Route: 048
     Dates: start: 20170101
  3. DENOSUMAB [Concomitant]
     Active Substance: DENOSUMAB
     Indication: PROSTATE CANCER
     Dosage: 70 MG MO
     Route: 058
     Dates: start: 20191020
  4. NIRAPARIB [Suspect]
     Active Substance: NIRAPARIB
     Indication: PROSTATE CANCER
     Dosage: MED KIT NUMBER 100137
     Route: 048
     Dates: start: 20200324, end: 20200409
  5. NADOLOL. [Concomitant]
     Active Substance: NADOLOL
     Indication: VARICES OESOPHAGEAL
  6. VITAMIN D [Concomitant]
     Active Substance: VITAMIN D NOS
     Indication: PROSTATE CANCER
     Dosage: 100 MG, QD
     Route: 048
     Dates: start: 20181003
  7. NADOLOL. [Concomitant]
     Active Substance: NADOLOL
     Indication: PORTAL HYPERTENSION
     Dosage: 20 MG, QD
     Route: 048
     Dates: start: 20200203
  8. JNJ-63723283 [Suspect]
     Active Substance: CETRELIMAB
     Indication: PROSTATE CANCER
     Dosage: MED KIT NUMBER 180948
     Route: 042
     Dates: start: 20200324
  9. LOSARTIN [Concomitant]
     Active Substance: LOSARTAN
     Indication: HYPERTENSION
     Dosage: 50 MG, QD
     Route: 048
     Dates: start: 2005
  10. LEUPROLIDE [Concomitant]
     Active Substance: LEUPROLIDE
     Indication: PROSTATE CANCER
     Dosage: 22.75 MG Q3M
     Route: 058
     Dates: start: 20161130
  11. CALCIUM GLUCONATE. [Concomitant]
     Active Substance: CALCIUM GLUCONATE
     Indication: PROSTATE CANCER
     Dosage: 600 MG, QD
     Route: 048
     Dates: start: 20181018
  12. NIRAPARIB [Suspect]
     Active Substance: NIRAPARIB
     Dosage: 100 MG, QD
     Route: 048
     Dates: start: 20200423

REACTIONS (1)
  - Diabetic ketoacidosis [Recovered/Resolved]
